FAERS Safety Report 10253847 (Version 1)
Quarter: 2014Q2

REPORT INFORMATION
  Report Type: Spontaneous
  Country: US (occurrence: US)
  Receive Date: 20140623
  Receipt Date: 20140623
  Transmission Date: 20141212
  Serious: No
  Sender: FDA-Public Use
  Company Number: US-ZOGENIX, INC.-2011ZX000578

PATIENT
  Sex: Female
  Weight: 64.92 kg

DRUGS (4)
  1. SUMAVEL DOSEPRO [Suspect]
     Indication: MIGRAINE
  2. REGLAN [Suspect]
     Indication: PRODUCT USED FOR UNKNOWN INDICATION
     Route: 042
     Dates: start: 20111125
  3. TREXIMET [Concomitant]
     Indication: MIGRAINE
     Route: 048
  4. FAMVIR [Concomitant]
     Indication: ORAL HERPES

REACTIONS (5)
  - Paranoia [Recovered/Resolved]
  - Injection site bruising [Recovered/Resolved]
  - Device malfunction [Recovered/Resolved]
  - Injection site pain [Recovered/Resolved]
  - Drug effect incomplete [Recovered/Resolved]
